FAERS Safety Report 9653392 (Version 2)
Quarter: 2014Q1

REPORT INFORMATION
  Report Type: Spontaneous
  Country: US (occurrence: US)
  Receive Date: 20131029
  Receipt Date: 20140210
  Transmission Date: 20141002
  Serious: Yes (Hospitalization)
  Sender: FDA-Public Use
  Company Number: US-BRISTOL-MYERS SQUIBB COMPANY-19611771

PATIENT
  Age: 59 Year
  Sex: Female
  Weight: 54.42 kg

DRUGS (1)
  1. ABILIFY [Suspect]
     Indication: MOOD SWINGS
     Dosage: 22JL13-5MG.5AG13-10MG
     Dates: start: 20130722

REACTIONS (2)
  - Confusional state [Unknown]
  - Off label use [Unknown]
